FAERS Safety Report 13692353 (Version 3)
Quarter: 2017Q4

REPORT INFORMATION
  Report Type: Spontaneous
  Country: JP (occurrence: JP)
  Receive Date: 20170627
  Receipt Date: 20171227
  Transmission Date: 20180320
  Serious: Yes (Other)
  Sender: FDA-Public Use
  Company Number: JP-SUN PHARMACEUTICAL INDUSTRIES LTD-2017RR-143711

PATIENT
  Age: 64 Year
  Sex: Male
  Weight: 65 kg

DRUGS (3)
  1. OLMESARTAN [Suspect]
     Active Substance: OLMESARTAN
     Indication: IDIOPATHIC INTRACRANIAL HYPERTENSION
     Dosage: 20 MG, DAILY
     Route: 048
  2. AMLODIPINE [Suspect]
     Active Substance: AMLODIPINE BESYLATE
     Indication: IDIOPATHIC INTRACRANIAL HYPERTENSION
     Dosage: 10 MG, DAILY
     Route: 048
  3. NICARDIPINE [Suspect]
     Active Substance: NICARDIPINE
     Indication: IDIOPATHIC INTRACRANIAL HYPERTENSION
     Dosage: 2 MG/HOUR
     Route: 042

REACTIONS (1)
  - Acute kidney injury [Recovered/Resolved]
